FAERS Safety Report 23231156 (Version 1)
Quarter: 2023Q4

REPORT INFORMATION
  Report Type: Spontaneous
  Country: CA (occurrence: CA)
  Receive Date: 20231127
  Receipt Date: 20231127
  Transmission Date: 20240110
  Serious: Yes (Hospitalization, Other)
  Sender: FDA-Public Use
  Company Number: CA-MLMSERVICE-20231113-4658883-1

PATIENT
  Age: 3 Decade
  Sex: Male

DRUGS (3)
  1. ARIPIPRAZOLE [Suspect]
     Active Substance: ARIPIPRAZOLE
     Indication: Bipolar disorder
     Dosage: UNK
     Route: 048
  2. QUETIAPINE [Suspect]
     Active Substance: QUETIAPINE
     Indication: Bipolar disorder
     Dosage: 25 MILLIGRAM, ONCE A DAY (25-100MG PO QHS  )
     Route: 048
  3. QUETIAPINE [Suspect]
     Active Substance: QUETIAPINE
     Dosage: 100 MILLIGRAM, ONCE A DAY (25-100MG PO QHS)
     Route: 048

REACTIONS (7)
  - Condition aggravated [Recovered/Resolved]
  - Substance use disorder [Recovered/Resolved]
  - Off label use [Recovered/Resolved]
  - Apathy [Unknown]
  - Sedation [Unknown]
  - Depressed mood [Unknown]
  - Libido decreased [Unknown]
